FAERS Safety Report 5577099-2 (Version None)
Quarter: 2007Q4

REPORT INFORMATION
  Report Type: 
  Country: None (occurrence: None)
  Receive Date: 20071130
  Receipt Date: 20070913
  Transmission Date: 20080405
  Serious: No
  Sender: FDA-Public Use
  Company Number: US200709002881

PATIENT
  Age: 73 Year
  Sex: Male
  Weight: 117.9 kg

DRUGS (3)
  1. BYETTA [Suspect]
     Indication: TYPE 2 DIABETES MELLITUS
     Dosage: 5 UG, 2/D, SUBCUTANEOUS
     Route: 058
     Dates: start: 20070913
  2. GLIPIZIDE [Concomitant]
  3. ACTOS /USA/ (PIOGLITAZONE HYDROCHLORIDE) TABLET [Concomitant]

REACTIONS (6)
  - BLOOD GLUCOSE DECREASED [None]
  - DIZZINESS [None]
  - DRY MOUTH [None]
  - FEELING JITTERY [None]
  - HEADACHE [None]
  - HUNGER [None]
